FAERS Safety Report 10233651 (Version 1)
Quarter: 2014Q2

REPORT INFORMATION
  Report Type: Spontaneous
  Country: AU (occurrence: AU)
  Receive Date: 20140612
  Receipt Date: 20140612
  Transmission Date: 20141212
  Serious: Yes (Other)
  Sender: FDA-Public Use
  Company Number: AU-ACTAVIS PTY LTD-2014-13057

PATIENT
  Age: 26 Year
  Sex: Female

DRUGS (4)
  1. SERTRALINE (UNKNOWN) [Suspect]
     Indication: DEPRESSION
     Dosage: 100 MG, UNKNOWN
     Route: 065
  2. SERTRALINE (UNKNOWN) [Suspect]
     Dosage: 50 MG, DAILY
  3. RANITIDINE [Concomitant]
     Indication: GASTROOESOPHAGEAL REFLUX DISEASE
     Dosage: UNKNOWN
     Route: 065
  4. METOCLOPRAMIDE [Concomitant]
     Indication: VOMITING IN PREGNANCY
     Dosage: UNKNOWN
     Route: 065

REACTIONS (2)
  - Liver injury [Recovered/Resolved]
  - Maternal exposure during pregnancy [Recovered/Resolved]
